FAERS Safety Report 5350404-8 (Version None)
Quarter: 2007Q2

REPORT INFORMATION
  Report Type: 
  Country: None (occurrence: None)
  Receive Date: 20070605
  Receipt Date: 20070605
  Transmission Date: 20071010
  Serious: No
  Sender: FDA-Public Use
  Company Number: None

PATIENT
  Age: 60 Year
  Sex: Female
  Weight: 46.7205 kg

DRUGS (2)
  1. ZELNORM [Suspect]
     Indication: DYSPEPSIA
     Dosage: 2MG BID PO
     Route: 048
     Dates: start: 20050916, end: 20051004
  2. ZELNORM [Suspect]
     Indication: DYSPEPSIA
     Dosage: 6MG BID PO
     Route: 048
     Dates: start: 20051004, end: 20051019

REACTIONS (2)
  - ASTHENIA [None]
  - CHEST PAIN [None]
